FAERS Safety Report 6369938-2 (Version None)
Quarter: 2009Q3

REPORT INFORMATION
  Report Type: 
  Country: None (occurrence: None)
  Receive Date: 20090923
  Receipt Date: 20070503
  Transmission Date: 20100115
  Serious: No
  Sender: FDA-Public Use
  Company Number: US-ASTRAZENECA-2006UW06993

PATIENT
  Age: 506 Month
  Sex: Female
  Weight: 145.1 kg

DRUGS (24)
  1. SEROQUEL [Suspect]
     Indication: INSOMNIA
     Dosage: 25-250 MG
     Route: 048
     Dates: start: 20041101, end: 20050216
  2. SEROQUEL [Suspect]
     Dosage: 25- 200 MG
     Route: 048
     Dates: start: 20041101
  3. SOMA [Concomitant]
  4. ALLEGRA [Concomitant]
  5. ZANTAC [Concomitant]
  6. ACTOS [Concomitant]
  7. LOTREL [Concomitant]
  8. SINGULAIR [Concomitant]
  9. TRAZODONE [Concomitant]
  10. NEXIUM [Concomitant]
  11. BUPROPION HCL [Concomitant]
  12. TRIVORA-21 [Concomitant]
  13. ALPRAZOLAM [Concomitant]
  14. AMBIEN CR [Concomitant]
  15. CITALOPRAM HYDROBROMIDE [Concomitant]
  16. FUROSEMIDE [Concomitant]
  17. BIAXIN [Concomitant]
  18. GLUCOPHAGE [Concomitant]
  19. LIBRAX [Concomitant]
  20. PROMETHAZINE [Concomitant]
  21. PAMINE FORTE [Concomitant]
  22. SONATA [Concomitant]
  23. BUSPIRONE HCL [Concomitant]
  24. LAMISIL [Concomitant]

REACTIONS (6)
  - BACK DISORDER [None]
  - BACK PAIN [None]
  - DIABETES MELLITUS [None]
  - GLUCOSE TOLERANCE IMPAIRED [None]
  - HYPERTENSION [None]
  - WEIGHT INCREASED [None]
